FAERS Safety Report 8415249-0 (Version None)
Quarter: 2012Q2

REPORT INFORMATION
  Report Type: 
  Country: None (occurrence: None)
  Receive Date: 20120606
  Receipt Date: 20120528
  Transmission Date: 20120825
  Serious: Yes (Hospitalization)
  Sender: FDA-Public Use
  Company Number: JP-VERTEX PHARMACEUTICALS INC.-AE-2012-007991

PATIENT
  Age: 69 Year
  Sex: Female

DRUGS (6)
  1. REBETOL [Concomitant]
     Indication: HEPATITIS C
     Route: 048
     Dates: start: 20120406, end: 20120510
  2. TELAVIC (TELAPREVIR) [Suspect]
     Indication: HEPATITIS C
     Route: 048
     Dates: start: 20120406, end: 20120518
  3. LOXOPROFEN [Concomitant]
     Route: 048
     Dates: start: 20120406
  4. SELBEX [Concomitant]
     Route: 048
     Dates: start: 20120406
  5. PEGINTERFERON ALFA-2B [Concomitant]
     Route: 051
     Dates: start: 20120406
  6. REBETOL [Concomitant]
     Route: 048
     Dates: start: 20120511, end: 20120519

REACTIONS (1)
  - MALAISE [None]
